FAERS Safety Report 4759229-5 (Version None)
Quarter: 2005Q3

REPORT INFORMATION
  Report Type: 
  Country: None (occurrence: None)
  Receive Date: 20050831
  Receipt Date: 20050811
  Transmission Date: 20060218
  Serious: Yes (Death)
  Sender: FDA-Public Use
  Company Number: WAES 0508GBR00051

PATIENT
  Age: 62 Year
  Sex: Male

DRUGS (10)
  1. VYTORIN [Suspect]
     Indication: HYPERCHOLESTEROLAEMIA
     Dosage: 10-40 MG/DAILY PO
     Route: 048
     Dates: start: 20050722
  2. ASPIRIN [Concomitant]
  3. BISOPROLOL [Concomitant]
  4. CITALOPRAM [Concomitant]
  5. CLOPIDOGREL BISULFATE [Concomitant]
  6. DIAZEPAM [Concomitant]
  7. LOSARTAN POTASSIUM [Concomitant]
  8. NITROGLYCERIN [Concomitant]
  9. OMEGA-3 ACID ETHYL ESTERS [Concomitant]
  10. SPIRONOLACTONE [Concomitant]

REACTIONS (1)
  - DEATH [None]
